FAERS Safety Report 7715513-4 (Version None)
Quarter: 2011Q3

REPORT INFORMATION
  Report Type: 
  Country: None (occurrence: None)
  Receive Date: 20110829
  Receipt Date: 20110826
  Transmission Date: 20111222
  Serious: Yes (Congenital Anomaly)
  Sender: FDA-Public Use
  Company Number: CN-JNJFOC-20110808792

PATIENT

DRUGS (2)
  1. MICONAZOLE [Suspect]
     Indication: MATERNAL EXPOSURE DURING PREGNANCY
     Route: 064
     Dates: start: 20110809, end: 20110810
  2. MICONAZOLE [Suspect]
     Route: 064

REACTIONS (1)
  - FOETAL DISORDER [None]
